FAERS Safety Report 20144339 (Version 1)
Quarter: 2021Q4

REPORT INFORMATION
  Report Type: Report from Study
  Country: US (occurrence: US)
  Receive Date: 20211203
  Receipt Date: 20211203
  Transmission Date: 20220303
  Serious: Yes (Hospitalization)
  Sender: FDA-Public Use
  Company Number: US-BAYER-2021A259560

PATIENT
  Age: 65 Year
  Sex: Female

DRUGS (1)
  1. STIVARGA [Suspect]
     Active Substance: REGORAFENIB
     Indication: Small intestine carcinoma
     Dosage: DAILY DOSE 120 MG FOR 21 DAYS THEN 7 DAYS OFF AND REPEAT
     Route: 048
     Dates: start: 20210121

REACTIONS (3)
  - Hospitalisation [Unknown]
  - Palmar-plantar erythrodysaesthesia syndrome [Unknown]
  - Off label use [None]

NARRATIVE: CASE EVENT DATE: 20210121
